FAERS Safety Report 6361924-1 (Version None)
Quarter: 2009Q3

REPORT INFORMATION
  Report Type: 
  Country: None (occurrence: None)
  Receive Date: 20090915
  Receipt Date: 20090819
  Transmission Date: 20100115
  Serious: Yes (Hospitalization)
  Sender: FDA-Public Use
  Company Number: 2009US002675

PATIENT
  Age: 15 Year
  Sex: Male

DRUGS (19)
  1. AMBISOME [Suspect]
     Indication: BRAIN ABSCESS
     Dosage: 250 MG, UID/QD, IV NOS
     Route: 042
     Dates: start: 20090608, end: 20090623
  2. FUNGUARD (MICAFUNGIN) INJECTION [Suspect]
     Indication: BRAIN ABSCESS
     Dosage: 50 MG, UID.QD, IV NOS; 150 MG, UID/QD, IV NOS
     Route: 042
     Dates: start: 20090531, end: 20090608
  3. FUNGUARD (MICAFUNGIN) INJECTION [Suspect]
     Indication: BRAIN ABSCESS
     Dosage: 50 MG, UID.QD, IV NOS; 150 MG, UID/QD, IV NOS
     Route: 042
     Dates: start: 20090609, end: 20090627
  4. PROGRAF [Suspect]
     Indication: GRAFT VERSUS HOST DISEASE
     Dosage: 0.005 MG/KG, UID/QD, IV NOS
     Route: 042
     Dates: start: 20090519, end: 20090608
  5. KYTRIL [Concomitant]
  6. GASTER [Concomitant]
  7. PANTOL (PANTHENOL) [Concomitant]
  8. ZOVIRAX [Concomitant]
  9. BROACT (CEFPIROME SULFATE) [Concomitant]
  10. GLYCEOL (GLYCEROL, FRUCTOSE) [Concomitant]
  11. ALEVIATIN (PHENYTOIN SODIUM) [Concomitant]
  12. PLATELETS [Concomitant]
  13. RED BLOOD CELLS [Concomitant]
  14. MANITOL (MANNITOL) [Concomitant]
  15. PRIMPERAN TAB [Concomitant]
  16. CERCINE [Concomitant]
  17. RADICUT (EDARAVONE) [Concomitant]
  18. CEFTAZIDIME [Concomitant]
  19. VANCOMYCIN [Concomitant]

REACTIONS (12)
  - ACUTE GRAFT VERSUS HOST DISEASE IN SKIN [None]
  - ALANINE AMINOTRANSFERASE INCREASED [None]
  - ASPARTATE AMINOTRANSFERASE INCREASED [None]
  - BLOOD ALKALINE PHOSPHATASE INCREASED [None]
  - BLOOD CREATINE PHOSPHOKINASE INCREASED [None]
  - BRAIN ABSCESS [None]
  - CONVULSION [None]
  - GAMMA-GLUTAMYLTRANSFERASE INCREASED [None]
  - HYPERNATRAEMIA [None]
  - HYPOKALAEMIA [None]
  - LIVER FUNCTION TEST ABNORMAL [None]
  - THIRST [None]
